FAERS Safety Report 18932467 (Version 3)
Quarter: 2021Q1

REPORT INFORMATION
  Report Type: Other
  Country: RO (occurrence: RO)
  Receive Date: 20210223
  Receipt Date: 20210310
  Transmission Date: 20210420
  Serious: Yes (Hospitalization, Other)
  Sender: FDA-Public Use
  Company Number: RO-ROCHE-2768398

PATIENT
  Age: 73 Year
  Sex: Female

DRUGS (6)
  1. CLONAZEPAM. [Suspect]
     Active Substance: CLONAZEPAM
     Indication: DEPRESSION
  2. TIANEPTINE [Concomitant]
     Active Substance: TIANEPTINE
  3. SULPIRIDE [Concomitant]
     Active Substance: SULPIRIDE
  4. CLONAZEPAM. [Suspect]
     Active Substance: CLONAZEPAM
     Indication: ANXIETY
     Dosage: WITH THE RECOMMENDATION TO BE GRADUALLY TAPERED AND DISCONTINUED IN OUTPATIENT UNIT
     Route: 065
  5. GABAPENTINE [Concomitant]
     Active Substance: GABAPENTIN
  6. ZOPICLONE [Concomitant]
     Active Substance: ZOPICLONE

REACTIONS (3)
  - Drug abuse [Unknown]
  - Dementia Alzheimer^s type [Recovering/Resolving]
  - Off label use [Unknown]
